FAERS Safety Report 19189231 (Version 2)
Quarter: 2021Q4

REPORT INFORMATION
  Report Type: Spontaneous
  Country: US (occurrence: US)
  Receive Date: 20210428
  Receipt Date: 20211203
  Transmission Date: 20220303
  Serious: No
  Sender: FDA-Public Use
  Company Number: US-BIOGEN-2021BI00974534

PATIENT
  Age: 55 Year
  Sex: Male

DRUGS (1)
  1. VUMERITY [Suspect]
     Active Substance: DIROXIMEL FUMARATE
     Indication: Multiple sclerosis
     Dosage: 231 MILLIGRAM, 4 FOR 1 DAY
     Route: 048
     Dates: start: 20201028

REACTIONS (8)
  - White blood cell count decreased [Not Recovered/Not Resolved]
  - Depression [Unknown]
  - Intervertebral disc protrusion [Unknown]
  - Fatigue [Unknown]
  - Platelet count decreased [Recovered/Resolved]
  - Diarrhoea [Not Recovered/Not Resolved]
  - Flushing [Not Recovered/Not Resolved]
  - Lymphocyte count decreased [Unknown]

NARRATIVE: CASE EVENT DATE: 20210420
